FAERS Safety Report 14641324 (Version 1)
Quarter: 2018Q1

REPORT INFORMATION
  Report Type: Spontaneous
  Country: US (occurrence: US)
  Receive Date: 20180315
  Receipt Date: 20180315
  Transmission Date: 20180509
  Serious: Yes (Congenital Anomaly, Other)
  Sender: FDA-Public Use
  Company Number: US-VERNALIS THERAPEUTICS, INC.-2018VRN00010

PATIENT
  Sex: Male
  Weight: 3.25 kg

DRUGS (2)
  1. AMOXICILLIN. [Suspect]
     Active Substance: AMOXICILLIN
     Indication: BACTERIURIA IN PREGNANCY
     Route: 064
  2. PRENATAL VITAMINS [Concomitant]
     Active Substance: VITAMINS
     Route: 064

REACTIONS (3)
  - Foetal exposure during pregnancy [Recovered/Resolved]
  - Ventricular extrasystoles [Not Recovered/Not Resolved]
  - Cardiac aneurysm [Not Recovered/Not Resolved]
